FAERS Safety Report 11443522 (Version 2)
Quarter: 2015Q3

REPORT INFORMATION
  Report Type: Report from Study
  Country: US (occurrence: US)
  Receive Date: 20150901
  Receipt Date: 20150914
  Transmission Date: 20151125
  Serious: No
  Sender: FDA-Public Use
  Company Number: US-AMGEN-USASP2015087562

PATIENT
  Age: 60 Year
  Sex: Female

DRUGS (1)
  1. ENBREL [Suspect]
     Active Substance: ETANERCEPT
     Indication: RHEUMATOID ARTHRITIS
     Dosage: 50 MG, QWK
     Route: 065
     Dates: start: 20150407

REACTIONS (7)
  - Drug dose omission [Unknown]
  - Injection site reaction [Unknown]
  - Incorrect product storage [Unknown]
  - Renal pain [Recovered/Resolved]
  - Malaise [Recovered/Resolved]
  - Injection site pruritus [Unknown]
  - Injection site pain [Not Recovered/Not Resolved]
